FAERS Safety Report 9820473 (Version 4)
Quarter: 2014Q4

REPORT INFORMATION
  Report Type: Spontaneous
  Country: GB (occurrence: None)
  Receive Date: 20140114
  Receipt Date: 20141117
  Transmission Date: 20150529
  Serious: Yes (Hospitalization, Other)
  Sender: FDA-Public Use
  Company Number: KAD201401-000006

PATIENT
  Age: 42 Year
  Sex: Female

DRUGS (7)
  1. PARACETAMOL (ACETAMINOPHEN) [Concomitant]
  2. CO-AMOXICLAV (AMOXICILLIN, POTASSIUM CLAVULANATE) [Concomitant]
  3. RIBAVIRIN. [Suspect]
     Active Substance: RIBAVIRIN
     Indication: CHRONIC HEPATITIS C
     Route: 048
     Dates: start: 20131002, end: 20131124
  4. OILATUM (LIQUID PETROLATUM, LIGHT LIQUID PARAFFIN, WHITE SOFT PARAFFIN) [Concomitant]
  5. PEGINTERFERON ALFA-2A [Suspect]
     Active Substance: PEGINTERFERON ALFA-2A
     Indication: WOLFF-PARKINSON-WHITE SYNDROME
     Route: 058
     Dates: start: 20131002
  6. COLLOIDAL OATMEAL (AVENA SATIVA) [Concomitant]
  7. TELAPREVIR [Suspect]
     Active Substance: TELAPREVIR
     Indication: CHRONIC HEPATITIS C
     Route: 048
     Dates: start: 20131002

REACTIONS (7)
  - Urinary tract infection [None]
  - White blood cell count decreased [None]
  - Tricuspid valve incompetence [None]
  - Neutrophil count decreased [None]
  - Mitral valve incompetence [None]
  - Anaemia [None]
  - Lymphocyte count decreased [None]

NARRATIVE: CASE EVENT DATE: 201311
